FAERS Safety Report 6120224-5 (Version None)
Quarter: 2009Q1

REPORT INFORMATION
  Report Type: 
  Country: None (occurrence: None)
  Receive Date: 20090312
  Receipt Date: 20090227
  Transmission Date: 20090719
  Serious: Yes (Hospitalization)
  Sender: FDA-Public Use
  Company Number: 232299K09USA

PATIENT
  Age: 49 Year
  Sex: Female

DRUGS (9)
  1. REBIF [Suspect]
     Indication: MULTIPLE SCLEROSIS
     Dosage: 22 MCG, 3 IN 1 WEEKS, SUBCUTANEOUS
     Route: 058
     Dates: start: 20040604
  2. TRAMADOL HCL [Concomitant]
  3. LORAZEPAM [Concomitant]
  4. BACLOFEN [Concomitant]
  5. CELEXA [Concomitant]
  6. OXYBUTYNIN CHLORIDE [Concomitant]
  7. FOSAMAX [Concomitant]
  8. TYLENOL (COTYLENOL) [Concomitant]
  9. BENADRYL [Concomitant]

REACTIONS (3)
  - CYSTITIS [None]
  - INFLUENZA [None]
  - MULTIPLE SCLEROSIS RELAPSE [None]
